FAERS Safety Report 15631113 (Version 1)
Quarter: 2018Q4

REPORT INFORMATION
  Report Type: Spontaneous
  Country: GB (occurrence: GB)
  Receive Date: 20181119
  Receipt Date: 20181119
  Transmission Date: 20190205
  Serious: Yes (Hospitalization, Other)
  Sender: FDA-Public Use
  Company Number: GB-AUROBINDO-AUR-APL-2011-05146

PATIENT
  Age: 91 Year
  Sex: Male

DRUGS (6)
  1. SIMVASTATIN. [Concomitant]
     Active Substance: SIMVASTATIN
     Indication: HYPERCHOLESTEROLAEMIA
  2. OMEPRAZOLE. [Concomitant]
     Active Substance: OMEPRAZOLE
     Indication: PRODUCT USED FOR UNKNOWN INDICATION
     Dosage: 40 MILLIGRAM; THE PATIENT IS CONTINUING ON THIS MEDICATION.
     Route: 048
  3. FUROSEMIDE. [Concomitant]
     Active Substance: FUROSEMIDE
     Indication: PRODUCT USED FOR UNKNOWN INDICATION
     Dosage: 80 MILLIGRAM; THE PATIENT IS CONTINUING WITH FUROSEMIDE AT 40MG OD.
     Route: 048
  4. SIMVASTATIN. [Concomitant]
     Active Substance: SIMVASTATIN
     Indication: CEREBROVASCULAR ACCIDENT
     Dosage: 20 MILLIGRAM, ONCE A DAY, DOSE: ONE AT NIGHT.
     Route: 048
     Dates: end: 20110904
  5. ZOPICLONE [Concomitant]
     Active Substance: ZOPICLONE
     Indication: PRODUCT USED FOR UNKNOWN INDICATION
     Dosage: 7.5 MILLIGRAM; DOSE: ONE AT NIGHT.
     Route: 048
     Dates: end: 20110904
  6. RISPERIDONE FILM-COATED TABLETS 0.5 MG [Suspect]
     Active Substance: RISPERIDONE
     Indication: DEMENTIA
     Dosage: 0.5 MILLIGRAM, ONCE A DAY, ONE DOSE AT NIGHT. MEDICATION STARTED RECENTLY
     Route: 048
     Dates: end: 20110904

REACTIONS (3)
  - Hypothermia [Recovered/Resolved]
  - Atrioventricular block complete [Not Recovered/Not Resolved]
  - Dementia [Unknown]

NARRATIVE: CASE EVENT DATE: 20110904
